FAERS Safety Report 4492527-1 (Version None)
Quarter: 2004Q4

REPORT INFORMATION
  Report Type: 
  Country: None (occurrence: None)
  Receive Date: 20041102
  Receipt Date: 20041102
  Transmission Date: 20050328
  Serious: Yes (Hospitalization)
  Sender: FDA-Public Use
  Company Number: None

PATIENT
  Sex: Male
  Weight: 78.93 kg

DRUGS (13)
  1. TEMOZOLOMIDE 75 MG/M2 SCHERING PLOUGH [Suspect]
     Indication: METASTASES TO CENTRAL NERVOUS SYSTEM
     Dosage: 146 MG ONCE A DAY ORAL
     Route: 048
     Dates: start: 20041025, end: 20041114
  2. DECADRON [Concomitant]
  3. DILANTIN [Concomitant]
  4. HEPARIN [Concomitant]
  5. COLACE [Concomitant]
  6. INSULIN [Concomitant]
  7. TYLENOL [Concomitant]
  8. PROTONIX [Concomitant]
  9. CALCIUM [Concomitant]
  10. CODEINE [Concomitant]
  11. GLUCAGON [Concomitant]
  12. LABETALOL [Concomitant]
  13. HYDRALIZINE [Concomitant]

REACTIONS (3)
  - CHEST PAIN [None]
  - NEOPLASM [None]
  - PALPITATIONS [None]
